FAERS Safety Report 11988702 (Version 12)
Quarter: 2018Q3

REPORT INFORMATION
  Report Type: Report from Study
  Country: CA (occurrence: CA)
  Receive Date: 20160202
  Receipt Date: 20180921
  Transmission Date: 20181010
  Serious: Yes (Death, Hospitalization, Other)
  Sender: FDA-Public Use
  Company Number: PHHY2015CA134928

PATIENT
  Age: 73 Year
  Sex: Female

DRUGS (10)
  1. ILARIS [Suspect]
     Active Substance: CANAKINUMAB
     Dosage: UNK
     Route: 058
     Dates: start: 20160328
  2. ILARIS [Suspect]
     Active Substance: CANAKINUMAB
     Indication: CRYOPYRIN ASSOCIATED PERIODIC SYNDROME
     Dosage: 150 MG, EVERY 8 WEEKS
     Route: 058
     Dates: start: 20151005
  3. ILARIS [Suspect]
     Active Substance: CANAKINUMAB
     Dosage: 300 MG, EVERY 8 WEEKS
     Route: 058
     Dates: start: 20180524
  4. ILARIS [Suspect]
     Active Substance: CANAKINUMAB
     Dosage: UNK
     Route: 058
     Dates: start: 20180201
  5. ILARIS [Suspect]
     Active Substance: CANAKINUMAB
     Dosage: UNK
     Route: 058
     Dates: start: 20161109
  6. ILARIS [Suspect]
     Active Substance: CANAKINUMAB
     Dosage: 300 UNK, (EVERY 8 WEEKS)
     Route: 058
     Dates: start: 20180719
  7. ILARIS [Suspect]
     Active Substance: CANAKINUMAB
     Dosage: UNK
     Route: 058
     Dates: start: 20160524
  8. ILARIS [Suspect]
     Active Substance: CANAKINUMAB
     Dosage: UNK
     Route: 058
     Dates: start: 20170426
  9. ILARIS [Suspect]
     Active Substance: CANAKINUMAB
     Dosage: UNK
     Route: 058
     Dates: start: 20170301
  10. ILARIS [Suspect]
     Active Substance: CANAKINUMAB
     Dosage: UNK
     Route: 058
     Dates: start: 20180328

REACTIONS (23)
  - Death [Fatal]
  - Eye contusion [Unknown]
  - Muscle spasms [Unknown]
  - Confusional state [Unknown]
  - Pneumonia [Unknown]
  - Hot flush [Unknown]
  - Hallucination [Unknown]
  - Memory impairment [Unknown]
  - Pulmonary oedema [Unknown]
  - Loss of consciousness [Unknown]
  - Fatigue [Unknown]
  - Back pain [Unknown]
  - Red blood cell microcytes [Unknown]
  - Anxiety [Unknown]
  - Poor quality sleep [Unknown]
  - Contusion [Unknown]
  - Pain in extremity [Unknown]
  - Blood pressure increased [Unknown]
  - Bronchitis [Unknown]
  - Stress [Unknown]
  - Cardiac disorder [Unknown]
  - Dysstasia [Unknown]
  - Hypoacusis [Unknown]

NARRATIVE: CASE EVENT DATE: 2015
